FAERS Safety Report 23163290 (Version 1)
Quarter: 2023Q4

REPORT INFORMATION
  Report Type: Spontaneous
  Country: US (occurrence: US)
  Receive Date: 20231109
  Receipt Date: 20231109
  Transmission Date: 20240109
  Serious: Yes (Hospitalization, Other)
  Sender: FDA-Public Use
  Company Number: US-BRISTOL-MYERS SQUIBB COMPANY-2023-158441

PATIENT
  Age: 67 Year
  Sex: Female

DRUGS (1)
  1. LENALIDOMIDE [Suspect]
     Active Substance: LENALIDOMIDE
     Indication: Chronic kidney disease
     Dosage: 1 CAPSULE BY MOUTH EVERY DAY ON DAYS 1-21 OF A 28-DAY CYCLE
     Route: 048

REACTIONS (3)
  - Fall [Unknown]
  - Concussion [Recovering/Resolving]
  - Off label use [Unknown]
